FAERS Safety Report 18278473 (Version 1)
Quarter: 2020Q3

REPORT INFORMATION
  Report Type: Spontaneous
  Country: US (occurrence: US)
  Receive Date: 20200917
  Receipt Date: 20200917
  Transmission Date: 20201103
  Serious: Yes (Other)
  Sender: FDA-Public Use
  Company Number: US-APOTEX-2020AP017807

PATIENT
  Age: 49 Year
  Sex: Female

DRUGS (3)
  1. TAMOXIFEN [Suspect]
     Active Substance: TAMOXIFEN
     Indication: ANTIOESTROGEN THERAPY
     Dosage: UNK
     Route: 065
  2. VENLAFAXINE [Suspect]
     Active Substance: VENLAFAXINE HYDROCHLORIDE
     Indication: PRODUCT USED FOR UNKNOWN INDICATION
     Dosage: UNK
     Route: 065
  3. DULOXETINE. [Interacting]
     Active Substance: DULOXETINE
     Indication: PRODUCT USED FOR UNKNOWN INDICATION
     Dosage: UNK
     Route: 065

REACTIONS (11)
  - Anger [Unknown]
  - Pain [Unknown]
  - Depressive symptom [Unknown]
  - Hot flush [Recovered/Resolved]
  - Therapeutic response decreased [Unknown]
  - Fatigue [Recovered/Resolved]
  - Myalgia [Unknown]
  - Drug interaction [Unknown]
  - Crying [Recovered/Resolved]
  - Drug intolerance [Unknown]
  - Myofascial pain syndrome [Unknown]
